FAERS Safety Report 21465663 (Version 1)
Quarter: 2022Q4

REPORT INFORMATION
  Report Type: Spontaneous
  Country: FR (occurrence: FR)
  Receive Date: 20221017
  Receipt Date: 20221017
  Transmission Date: 20230113
  Serious: Yes (Life-Threatening, Hospitalization)
  Sender: FDA-Public Use
  Company Number: None

PATIENT
  Age: 64 Year
  Sex: Male
  Weight: 70 kg

DRUGS (21)
  1. AMIKACIN [Suspect]
     Active Substance: AMIKACIN
     Indication: Product used for unknown indication
     Dosage: 2000 MILLIGRAM QD
     Route: 042
     Dates: start: 20220701, end: 20220702
  2. AMIKACIN [Suspect]
     Active Substance: AMIKACIN
     Dosage: 1000 MILLIGRAM
     Route: 042
     Dates: start: 20220704, end: 20220704
  3. AMIKACIN [Suspect]
     Active Substance: AMIKACIN
     Dosage: 1500 MILLIGRAM
     Route: 042
     Dates: start: 20220705, end: 20220706
  4. VANCOMYCIN [Suspect]
     Active Substance: VANCOMYCIN
     Indication: Febrile bone marrow aplasia
     Dosage: LOADING DOSE:  25MG/KG
     Route: 042
     Dates: start: 20220614, end: 20220614
  5. VANCOMYCIN [Suspect]
     Active Substance: VANCOMYCIN
     Dosage: 20 MG/KG EVERY 12 HRS
     Route: 042
     Dates: start: 20220614, end: 20220622
  6. CELLCEPT [Suspect]
     Active Substance: MYCOPHENOLATE MOFETIL
     Indication: Prophylaxis against transplant rejection
     Dosage: 500 MG*2/DAY 8 A.M. 8 P.M.
     Route: 048
     Dates: start: 20220526, end: 20220627
  7. FLUCONAZOLE [Suspect]
     Active Substance: FLUCONAZOLE
     Indication: Product used for unknown indication
     Dosage: 400 MILLIGRAM QD
     Route: 048
     Dates: start: 20220630, end: 20220707
  8. CILASTATIN SODIUM\IMIPENEM [Suspect]
     Active Substance: CILASTATIN SODIUM\IMIPENEM
     Indication: Febrile bone marrow aplasia
     Dosage: 1G*3/DAY
     Route: 042
     Dates: start: 20220624, end: 20220702
  9. NEORAL [Suspect]
     Active Substance: CYCLOSPORINE
     Indication: Bone marrow transplant rejection
     Dosage: UNK
     Route: 048
     Dates: start: 20220702
  10. NEORAL [Suspect]
     Active Substance: CYCLOSPORINE
     Dosage: 120 MG 8H 20 H
     Route: 048
     Dates: start: 20220620, end: 20220623
  11. METRONIDAZOLE [Suspect]
     Active Substance: METRONIDAZOLE
     Indication: Splenic infarction
     Dosage: 500MG*3/DAY
     Route: 042
     Dates: start: 20220701, end: 20220704
  12. PAXLOVID [Interacting]
     Active Substance: NIRMATRELVIR\RITONAVIR
     Indication: COVID-19
     Dosage: 41 MORNING AND EVENING CYCLES
     Route: 048
     Dates: start: 20220630, end: 20220705
  13. ZOVIRAX [Suspect]
     Active Substance: ACYCLOVIR
     Indication: Product used for unknown indication
     Dosage: 500 MILLIGRAM, QD
     Route: 042
     Dates: start: 20220624, end: 20220630
  14. ZOVIRAX [Suspect]
     Active Substance: ACYCLOVIR
     Dosage: 500 MILLIGRAM, QD
     Route: 042
     Dates: start: 20220706, end: 20220710
  15. PIPERACILLIN SODIUM\TAZOBACTAM SODIUM [Suspect]
     Active Substance: PIPERACILLIN SODIUM\TAZOBACTAM SODIUM
     Indication: Febrile bone marrow aplasia
     Dosage: UNK
     Route: 042
     Dates: start: 20220614, end: 20220622
  16. PIPERACILLIN SODIUM\TAZOBACTAM SODIUM [Suspect]
     Active Substance: PIPERACILLIN SODIUM\TAZOBACTAM SODIUM
     Dosage: UNK
     Route: 042
     Dates: start: 20220608, end: 20220614
  17. PIPERACILLIN SODIUM\TAZOBACTAM SODIUM [Suspect]
     Active Substance: PIPERACILLIN SODIUM\TAZOBACTAM SODIUM
     Dosage: 4G*4/DAY
     Route: 042
     Dates: start: 20220530, end: 20220604
  18. FLUCONAZOLE [Suspect]
     Active Substance: FLUCONAZOLE
     Indication: Product used for unknown indication
     Dosage: AT 8 A.M.
     Route: 042
     Dates: start: 20220625, end: 20220630
  19. FLUCONAZOLE [Suspect]
     Active Substance: FLUCONAZOLE
     Dosage: 1 BOTTLE/24H TO 8H
     Route: 042
     Dates: start: 20220624, end: 20220624
  20. LINEZOLID [Suspect]
     Active Substance: LINEZOLID
     Indication: Febrile bone marrow aplasia
     Dosage: 600MG *2/DAY
     Route: 048
     Dates: start: 20220610, end: 20220614
  21. CYCLOSPORINE [Suspect]
     Active Substance: CYCLOSPORINE
     Indication: Prophylaxis against transplant rejection
     Dosage: 105.9MG *2/DAY
     Route: 042
     Dates: start: 20220521

REACTIONS (3)
  - Coma [Recovered/Resolved]
  - Confusional state [Not Recovered/Not Resolved]
  - Drug interaction [Unknown]

NARRATIVE: CASE EVENT DATE: 20220628
